FAERS Safety Report 6939500-9 (Version None)
Quarter: 2010Q3

REPORT INFORMATION
  Report Type: 
  Country: None (occurrence: None)
  Receive Date: 20100824
  Receipt Date: 20100816
  Transmission Date: 20110219
  Serious: Yes (Death, Other)
  Sender: FDA-Public Use
  Company Number: US-AMGEN-QUU427465

PATIENT
  Sex: Male
  Weight: 113.9 kg

DRUGS (1)
  1. ENBREL [Suspect]
     Indication: ANKYLOSING SPONDYLITIS
     Route: 058
     Dates: start: 20070801, end: 20100719

REACTIONS (4)
  - CARDIAC DISORDER [None]
  - DEATH [None]
  - HYPERTENSION [None]
  - OBESITY [None]
